FAERS Safety Report 12061189 (Version 1)
Quarter: 2016Q1

REPORT INFORMATION
  Report Type: Spontaneous
  Country: US (occurrence: US)
  Receive Date: 20160210
  Receipt Date: 20160210
  Transmission Date: 20160526
  Serious: No
  Sender: FDA-Public Use
  Company Number: US-ALLERGAN-1500909US

PATIENT
  Sex: Female

DRUGS (1)
  1. BOTOX [Suspect]
     Active Substance: ONABOTULINUMTOXINA
     Indication: SPASMODIC DYSPHONIA
     Dosage: 4 UNITS, SINGLE
     Route: 030
     Dates: start: 20140722, end: 20140722

REACTIONS (1)
  - Dysphagia [Unknown]
